FAERS Safety Report 18407844 (Version 3)
Quarter: 2022Q1

REPORT INFORMATION
  Report Type: Spontaneous
  Country: HU (occurrence: HU)
  Receive Date: 20201020
  Receipt Date: 20220310
  Transmission Date: 20220424
  Serious: Yes (Other)
  Sender: FDA-Public Use
  Company Number: HU-BOEHRINGERINGELHEIM-2020-BI-054104

PATIENT
  Age: 68 Year
  Sex: Male

DRUGS (2)
  1. GILOTRIF [Suspect]
     Active Substance: AFATINIB
     Indication: Lung adenocarcinoma
     Route: 065
     Dates: start: 201707, end: 201810
  2. GILOTRIF [Suspect]
     Active Substance: AFATINIB
     Route: 065
     Dates: start: 201810

REACTIONS (3)
  - Malignant neoplasm progression [Recovered/Resolved]
  - Dermatitis [Recovered/Resolved]
  - Radiation necrosis [Unknown]

NARRATIVE: CASE EVENT DATE: 20180816
